FAERS Safety Report 16853613 (Version 1)
Quarter: 2019Q3

REPORT INFORMATION
  Report Type: Spontaneous
  Country: ES (occurrence: ES)
  Receive Date: 20190926
  Receipt Date: 20190926
  Transmission Date: 20191005
  Serious: Yes (Other)
  Sender: FDA-Public Use
  Company Number: ES-AUROBINDO-AUR-APL-2019-061614

PATIENT
  Age: 85 Year
  Sex: Male
  Weight: 80 kg

DRUGS (3)
  1. CINFAMUCOL CARBOCISTEINA [Concomitant]
     Indication: UPPER RESPIRATORY TRACT INFECTION
     Dosage: 1 GRAM, 3 TIMES A DAY
     Route: 048
     Dates: start: 20190722, end: 20190803
  2. LEVOFLOXACIN. [Suspect]
     Active Substance: LEVOFLOXACIN
     Indication: RESPIRATORY TRACT INFECTION
     Dosage: 500 MILLIGRAM, TWO TIMES A DAY
     Route: 048
     Dates: start: 20190722, end: 20190728
  3. ROMILAR [Concomitant]
     Active Substance: DEXTROMETHORPHAN HYDROBROMIDE
     Indication: UPPER RESPIRATORY TRACT INFECTION
     Dosage: 15 MILLIGRAM, 3 TIMES A DAY
     Route: 048
     Dates: start: 20190722, end: 20190803

REACTIONS (1)
  - Myopathy [Recovering/Resolving]

NARRATIVE: CASE EVENT DATE: 20190727
